FAERS Safety Report 4637337-7 (Version None)
Quarter: 2005Q2

REPORT INFORMATION
  Report Type: 
  Country: None (occurrence: None)
  Receive Date: 20050418
  Receipt Date: 20050330
  Transmission Date: 20051028
  Serious: Yes (Hospitalization, Other)
  Sender: FDA-Public Use
  Company Number: 200512865GDDC

PATIENT
  Age: 60 Year
  Sex: Female

DRUGS (7)
  1. ARAVA [Suspect]
     Indication: RHEUMATOID ARTHRITIS
     Dosage: DOSE: UNK
     Route: 048
     Dates: start: 20031101, end: 20040801
  2. METHOTREXATE [Suspect]
     Indication: RHEUMATOID ARTHRITIS
     Dosage: DOSE: UNK
     Dates: start: 20030314, end: 20040101
  3. NAPROXEN [Concomitant]
  4. NOTEN [Concomitant]
  5. PREDNISOLONE [Concomitant]
  6. COVERSYL [Concomitant]
  7. PREMARIN [Concomitant]

REACTIONS (5)
  - ALVEOLITIS ALLERGIC [None]
  - DYSPNOEA [None]
  - LIVER DISORDER [None]
  - LOWER RESPIRATORY TRACT INFECTION [None]
  - NO ADVERSE DRUG EFFECT [None]
